FAERS Safety Report 9134739 (Version 2)
Quarter: 2013Q1

REPORT INFORMATION
  Report Type: Spontaneous
  Country: US (occurrence: US)
  Receive Date: 20130304
  Receipt Date: 20130307
  Transmission Date: 20140127
  Serious: No
  Sender: FDA-Public Use
  Company Number: US-PFIZER INC-2013070359

PATIENT
  Age: 49 Year
  Sex: Female
  Weight: 74.83 kg

DRUGS (16)
  1. CIPROFLOXACIN [Suspect]
     Dosage: UNK
  2. CLINDAMYCIN HCL [Suspect]
     Dosage: UNK
     Dates: start: 1998
  3. DOXYCYCLINE HYCLATE [Suspect]
     Dosage: UNK
  4. PREMPRO [Suspect]
     Dosage: UNK
     Dates: start: 1998
  5. FLAGYL [Suspect]
     Dosage: UNK
     Dates: start: 1998
  6. VANCOMYCIN HCL [Suspect]
     Dosage: UNK
  7. AMITRIPTYLINE [Suspect]
     Dosage: UNK
  8. PERCOCET [Suspect]
     Dosage: UNK
  9. TAGAMET [Suspect]
     Dosage: UNK
  10. TRIAMTERENE/HYDROCHLOROTHIAZIDE [Concomitant]
     Dosage: 37.5/25 MG QD
  11. CELEBREX [Concomitant]
     Dosage: 200 MG, QD
  12. LORATADINE [Concomitant]
     Dosage: 10 MG, QD
  13. GABAPENTIN [Concomitant]
     Dosage: 600 MG, QD
  14. ESTRADIOL [Concomitant]
     Dosage: 1 MG, QOD
  15. VITAMIN D [Concomitant]
     Dosage: 1000 MG, QD
  16. FISH OIL [Concomitant]
     Dosage: 4000 MG, QD

REACTIONS (1)
  - Drug hypersensitivity [Unknown]
